FAERS Safety Report 11252136 (Version 1)
Quarter: 2015Q3

REPORT INFORMATION
  Report Type: Spontaneous
  Country: US (occurrence: US)
  Receive Date: 20150708
  Receipt Date: 20150708
  Transmission Date: 20151125
  Serious: No
  Sender: FDA-Public Use
  Company Number: US-ELI_LILLY_AND_COMPANY-US201211004732

PATIENT
  Sex: Male

DRUGS (5)
  1. GLUCAGON. [Suspect]
     Active Substance: GLUCAGON
     Indication: BLOOD GLUCOSE DECREASED
  2. LANTUS [Concomitant]
     Active Substance: INSULIN GLARGINE
     Dosage: 8 U, EACH EVENING
  3. BENADRYL [Concomitant]
     Active Substance: DIPHENHYDRAMINE HYDROCHLORIDE
  4. GLUCAGON. [Suspect]
     Active Substance: GLUCAGON
  5. HUMALOG MIX75/25 [Concomitant]
     Active Substance: INSULIN LISPRO
     Indication: DIABETES MELLITUS
     Dosage: UNK, PRN

REACTIONS (2)
  - Underdose [Unknown]
  - Blood glucose decreased [Unknown]
